FAERS Safety Report 5719254-4 (Version None)
Quarter: 2008Q2

REPORT INFORMATION
  Report Type: 
  Country: None (occurrence: None)
  Receive Date: 20080428
  Receipt Date: 20080428
  Transmission Date: 20081010
  Serious: Yes (Disabling)
  Sender: FDA-Public Use
  Company Number: None

PATIENT
  Sex: Male
  Weight: 75.2971 kg

DRUGS (1)
  1. HEPARIN [Suspect]
     Indication: CORONARY ARTERY BYPASS
     Dates: start: 20071001, end: 20071201

REACTIONS (4)
  - HYPOTENSION [None]
  - MYALGIA [None]
  - NECK PAIN [None]
  - QUALITY OF LIFE DECREASED [None]
